FAERS Safety Report 20736260 (Version 1)
Quarter: 2022Q2

REPORT INFORMATION
  Report Type: Spontaneous
  Country: US (occurrence: None)
  Receive Date: 20220421
  Receipt Date: 20220421
  Transmission Date: 20220721
  Serious: No
  Sender: FDA-Public Use
  Company Number: None

PATIENT
  Age: 74 Year
  Sex: Male
  Weight: 85.0 kg

DRUGS (14)
  1. BICALUTAMIDE [Suspect]
     Active Substance: BICALUTAMIDE
     Dosage: FREQUENCY : DAILY;?
     Route: 048
     Dates: end: 20220418
  2. ADVIL [Concomitant]
     Active Substance: IBUPROFEN
  3. BICALUTAMIDE [Concomitant]
     Active Substance: BICALUTAMIDE
  4. BISACODYL [Concomitant]
     Active Substance: BISACODYL
  5. CARVEDILOL [Concomitant]
     Active Substance: CARVEDILOL
  6. FAMOTIDINE [Concomitant]
     Active Substance: FAMOTIDINE
  7. GABAPENTIN [Concomitant]
     Active Substance: GABAPENTIN
  8. LACTULOSE [Concomitant]
     Active Substance: LACTULOSE
  9. MIRALAX [Concomitant]
     Active Substance: POLYETHYLENE GLYCOL 3350
  10. NORCO [Concomitant]
     Active Substance: ACETAMINOPHEN\HYDROCODONE BITARTRATE
  11. PREDNISONE [Concomitant]
     Active Substance: PREDNISONE
  12. TAMSULOSIN [Concomitant]
     Active Substance: TAMSULOSIN
  13. TYLENOL [Concomitant]
     Active Substance: ACETAMINOPHEN
  14. ZYTIGA [Concomitant]
     Active Substance: ABIRATERONE ACETATE

REACTIONS (1)
  - Hospitalisation [None]
